FAERS Safety Report 4282443-2 (Version None)
Quarter: 2004Q1

REPORT INFORMATION
  Report Type: 
  Country: None (occurrence: None)
  Receive Date: 20040129
  Receipt Date: 20040116
  Transmission Date: 20041129
  Serious: Yes (Death)
  Sender: FDA-Public Use
  Company Number: US-JNJFOC-20040103281

PATIENT
  Age: 65 Year
  Sex: Female

DRUGS (17)
  1. INFLIXIMAB (INFLIXIMAB, RECOMBINANT) LYOPHILIZED POWDER [Suspect]
     Indication: RHEUMATOID ARTHRITIS
     Dosage: INTRAVENOUS
     Route: 042
     Dates: start: 20010530, end: 20031027
  2. AZATHIOPRINE [Concomitant]
  3. PREDNISONE [Concomitant]
  4. SYNTHROID [Concomitant]
  5. NEURONTIN [Concomitant]
  6. FOSAMAX [Concomitant]
  7. K-DUR (POTASSIUM SODIUM) [Concomitant]
  8. LODINE [Concomitant]
  9. VALIUM [Concomitant]
  10. LASIX [Concomitant]
  11. LANOXIN [Concomitant]
  12. COUMADIN [Concomitant]
  13. AMITRIPTYLINE HCL [Concomitant]
  14. CALCIUM (CALCIUM) [Concomitant]
  15. FOLIC ACID [Concomitant]
  16. EYE DROPS (ALL OTHER THERAPEUTIC PRODUCTS) [Concomitant]
  17. PERCOCET (PERCOCET) [Concomitant]

REACTIONS (2)
  - MYOCARDIAL INFARCTION [None]
  - SUDDEN DEATH [None]
